FAERS Safety Report 8903063 (Version 1)
Quarter: 2012Q4

REPORT INFORMATION
  Report Type: 
  Country: US (occurrence: US)
  Receive Date: 20121112
  Receipt Date: 20121112
  Transmission Date: 20130627
  Serious: No
  Sender: FDA-Public Use
  Company Number: US-BIOGENIDEC-2012BI049809

PATIENT
  Sex: Female

DRUGS (3)
  1. AVONEX [Suspect]
     Indication: MULTIPLE SCLEROSIS
     Route: 030
     Dates: start: 20010517, end: 2003
  2. AVONEX [Suspect]
     Indication: MULTIPLE SCLEROSIS
     Route: 030
     Dates: start: 2003
  3. TYLENOL [Concomitant]
     Indication: PREMEDICATION

REACTIONS (11)
  - Injection site pruritus [Recovered/Resolved]
  - Injection site haemorrhage [Recovered/Resolved]
  - Musculoskeletal disorder [Recovered/Resolved]
  - Multiple sclerosis [Not Recovered/Not Resolved]
  - Vertigo [Recovered/Resolved]
  - Sensation of heaviness [Not Recovered/Not Resolved]
  - Skin induration [Not Recovered/Not Resolved]
  - Muscular weakness [Not Recovered/Not Resolved]
  - Anxiety [Recovered/Resolved]
  - Pain [Not Recovered/Not Resolved]
  - Dizziness [Recovered/Resolved]
